FAERS Safety Report 22331266 (Version 3)
Quarter: 2023Q2

REPORT INFORMATION
  Report Type: Report from Study
  Country: US (occurrence: US)
  Receive Date: 20230517
  Receipt Date: 20230529
  Transmission Date: 20230721
  Serious: No
  Sender: FDA-Public Use
  Company Number: US-002147023-NVSC2023US112246

PATIENT
  Age: 34 Year
  Sex: Female
  Weight: 56.689 kg

DRUGS (6)
  1. METHOTREXATE [Suspect]
     Active Substance: METHOTREXATE
     Indication: Juvenile psoriatic arthritis
     Dosage: UNK
     Route: 065
  2. AMOXICILLIN [Suspect]
     Active Substance: AMOXICILLIN
     Indication: Wisdom teeth removal
     Dosage: UNK
     Route: 065
  3. DOXYCYCLINE [Suspect]
     Active Substance: DOXYCYCLINE
     Indication: Sinusitis
     Dosage: UNK
     Route: 065
  4. MELOXICAM [Suspect]
     Active Substance: MELOXICAM
     Indication: Product used for unknown indication
     Dosage: UNK
     Route: 065
     Dates: start: 20221130
  5. METHENAMINE [Concomitant]
     Active Substance: METHENAMINE
     Indication: Prophylaxis urinary tract infection
     Dosage: UNK
     Route: 065
  6. CRANBERRY [Concomitant]
     Active Substance: CRANBERRY
     Indication: Prophylaxis urinary tract infection
     Dosage: UNK
     Route: 065

REACTIONS (13)
  - Back pain [Not Recovered/Not Resolved]
  - Sciatica [Unknown]
  - Tendon pain [Unknown]
  - Musculoskeletal stiffness [Unknown]
  - Dry skin [Unknown]
  - Sinusitis [Unknown]
  - COVID-19 [Unknown]
  - Urethritis noninfective [Unknown]
  - Micturition urgency [Unknown]
  - Pharyngitis streptococcal [Unknown]
  - Tuberculin test positive [Unknown]
  - Toothache [Unknown]
  - Treatment failure [Unknown]

NARRATIVE: CASE EVENT DATE: 20230103
